FAERS Safety Report 5901900-3 (Version None)
Quarter: 2008Q3

REPORT INFORMATION
  Report Type: 
  Country: None (occurrence: None)
  Receive Date: 20080925
  Receipt Date: 20080826
  Transmission Date: 20090109
  Serious: No
  Sender: FDA-Public Use
  Company Number: ADE# 08-137

PATIENT
  Sex: Female

DRUGS (1)
  1. METOPROLOL TARTRATE [Suspect]
     Indication: HYPERTENSION
     Dosage: 1/2 TABLET TWICE DAILY
     Dates: start: 20080501, end: 20080801

REACTIONS (3)
  - ALOPECIA [None]
  - OCULAR ICTERUS [None]
  - YELLOW SKIN [None]
